FAERS Safety Report 8881233 (Version 1)
Quarter: 2012Q4

REPORT INFORMATION
  Report Type: 
  Country: GB (occurrence: GB)
  Receive Date: 20121031
  Receipt Date: 20121031
  Transmission Date: 20130627
  Serious: Yes (Life-Threatening, Hospitalization, Other)
  Sender: FDA-Public Use
  Company Number: GB-ASTRAZENECA-2012SE81170

PATIENT
  Age: 47 Year
  Sex: Male
  Weight: 80 kg

DRUGS (3)
  1. QUETIAPINE [Suspect]
     Indication: DEPRESSION
     Route: 048
     Dates: start: 20111220, end: 20120110
  2. RAMIPRIL [Concomitant]
     Route: 048
  3. VENLAFAXINE [Concomitant]
     Route: 048

REACTIONS (3)
  - Cardiac arrest [Recovered/Resolved]
  - Pulmonary embolism [Unknown]
  - Embolism venous [Unknown]
